FAERS Safety Report 4375988-8 (Version None)
Quarter: 2004Q2

REPORT INFORMATION
  Report Type: 
  Country: None (occurrence: None)
  Receive Date: 20040609
  Receipt Date: 20040609
  Transmission Date: 20050107
  Serious: Yes (Other)
  Sender: FDA-Public Use
  Company Number: None

PATIENT
  Age: 35 Year
  Sex: Female
  Weight: 61.2356 kg

DRUGS (1)
  1. LARIUM-MEFLOQUIN- STANDARD PILLS [Suspect]
     Indication: MALARIA PROPHYLAXIS
     Dosage: 1 PILL DAILY ORAL
     Route: 048
     Dates: start: 20000515, end: 20000607

REACTIONS (1)
  - RASH [None]
